FAERS Safety Report 15348510 (Version 2)
Quarter: 2021Q3

REPORT INFORMATION
  Report Type: Spontaneous
  Country: US (occurrence: US)
  Receive Date: 20180904
  Receipt Date: 20210824
  Transmission Date: 20211014
  Serious: No
  Sender: FDA-Public Use
  Company Number: US-OREXO US, INC.-ORE201803-000026

PATIENT
  Age: 51 Year
  Sex: Male
  Weight: 74.84 kg

DRUGS (2)
  1. ZUBSOLV [Suspect]
     Active Substance: BUPRENORPHINE HYDROCHLORIDE\NALOXONE HYDROCHLORIDE
     Indication: DRUG DEPENDENCE
     Dosage: SOME DAYS ONLY TAKES 2 TABLETS
  2. ZUBSOLV [Suspect]
     Active Substance: BUPRENORPHINE HYDROCHLORIDE\NALOXONE HYDROCHLORIDE
     Indication: PAIN
     Dosage: THREE TIMES A DAY; 17.1/4.2 MG DAILY

REACTIONS (3)
  - Inappropriate schedule of product administration [Unknown]
  - Headache [Not Recovered/Not Resolved]
  - Product use in unapproved indication [Unknown]
